FAERS Safety Report 14602896 (Version 2)
Quarter: 2018Q1

REPORT INFORMATION
  Report Type: Spontaneous
  Country: US (occurrence: US)
  Receive Date: 20180306
  Receipt Date: 20180312
  Transmission Date: 20180509
  Serious: No
  Sender: FDA-Public Use
  Company Number: US-ELI_LILLY_AND_COMPANY-US201803001472

PATIENT
  Age: 49 Year
  Sex: Male

DRUGS (1)
  1. TALTZ [Suspect]
     Active Substance: IXEKIZUMAB
     Indication: PSORIASIS
     Dosage: 80 MG, UNKNOWN
     Route: 058
     Dates: start: 20180215

REACTIONS (4)
  - Injection site reaction [Recovering/Resolving]
  - Injection site erythema [Recovering/Resolving]
  - Injection site rash [Recovering/Resolving]
  - Injection site pain [Recovering/Resolving]

NARRATIVE: CASE EVENT DATE: 20180216
